FAERS Safety Report 5195679-3 (Version None)
Quarter: 2006Q4

REPORT INFORMATION
  Report Type: 
  Country: None (occurrence: None)
  Receive Date: 20061227
  Receipt Date: 20061221
  Transmission Date: 20070319
  Serious: Yes (Other)
  Sender: FDA-Public Use
  Company Number: DSA_29092_2006

PATIENT
  Age: 41 Year
  Sex: Male

DRUGS (4)
  1. CARDIZEM LA [Suspect]
     Indication: HYPERTENSION
     Dosage: 180 MG QD PO
     Route: 048
     Dates: start: 20061001, end: 20061201
  2. CIPRO [Concomitant]
  3. CORGARD [Concomitant]
  4. PROCARDIA [Concomitant]

REACTIONS (11)
  - ARTHRALGIA [None]
  - CLUBBING [None]
  - DRUG INTERACTION [None]
  - DYSSTASIA [None]
  - FEELING ABNORMAL [None]
  - INFLUENZA [None]
  - INFLUENZA LIKE ILLNESS [None]
  - JOINT SWELLING [None]
  - NASOPHARYNGITIS [None]
  - OEDEMA PERIPHERAL [None]
  - PAIN IN EXTREMITY [None]
